FAERS Safety Report 12723332 (Version 1)
Quarter: 2016Q3

REPORT INFORMATION
  Report Type: Spontaneous
  Country: GB (occurrence: GB)
  Receive Date: 20160908
  Receipt Date: 20160908
  Transmission Date: 20161109
  Serious: Yes (Hospitalization, Other)
  Sender: FDA-Public Use
  Company Number: GB-ASTRAZENECA-2016SE94443

PATIENT
  Age: 82 Year
  Sex: Male

DRUGS (9)
  1. ALLOPURINOL. [Concomitant]
     Active Substance: ALLOPURINOL
  2. DIGOXIN. [Concomitant]
     Active Substance: DIGOXIN
  3. OMEPRAZOLE. [Suspect]
     Active Substance: OMEPRAZOLE
     Indication: DUODENITIS
     Route: 048
     Dates: start: 20110601, end: 20160822
  4. FUROSEMIDE. [Concomitant]
     Active Substance: FUROSEMIDE
  5. PARACETAMOL [Concomitant]
     Active Substance: ACETAMINOPHEN
  6. WARFARIN [Concomitant]
     Active Substance: WARFARIN
  7. BISACODYL. [Concomitant]
     Active Substance: BISACODYL
  8. BISOPROLOL [Concomitant]
     Active Substance: BISOPROLOL
  9. FERROUS FUMARATE [Concomitant]
     Active Substance: FERROUS FUMARATE

REACTIONS (2)
  - Hypomagnesaemia [Recovering/Resolving]
  - Mobility decreased [Unknown]

NARRATIVE: CASE EVENT DATE: 20160822
